FAERS Safety Report 9795462 (Version 1)
Quarter: 2014Q1

REPORT INFORMATION
  Report Type: Spontaneous
  Country: US (occurrence: US)
  Receive Date: 20140103
  Receipt Date: 20140103
  Transmission Date: 20141002
  Serious: Yes (Hospitalization)
  Sender: FDA-Public Use
  Company Number: US-BAYER-2014-000362

PATIENT
  Age: 24 Year
  Sex: Female
  Weight: 72.11 kg

DRUGS (7)
  1. YAZ [Suspect]
  2. YASMIN [Suspect]
  3. HYDROCODONE [Concomitant]
  4. TORADOL [Concomitant]
  5. HYDROCODONE W/APAP [Concomitant]
  6. E-MYCIN [Concomitant]
     Dosage: 333 TID FOR 10 DAYS
  7. VIGAMOX [Concomitant]
     Dosage: 0.5 %, UNK

REACTIONS (1)
  - Pulmonary embolism [Recovered/Resolved]
